FAERS Safety Report 5953624-4 (Version None)
Quarter: 2008Q4

REPORT INFORMATION
  Report Type: 
  Country: None (occurrence: None)
  Receive Date: 20081114
  Receipt Date: 20081104
  Transmission Date: 20090506
  Serious: Yes (Hospitalization)
  Sender: FDA-Public Use
  Company Number: B0539875A

PATIENT
  Age: 50 Year
  Sex: Female

DRUGS (10)
  1. TYVERB [Suspect]
     Indication: BREAST CANCER
     Dosage: 1250MG PER DAY
     Route: 065
     Dates: start: 20080730, end: 20080923
  2. DEXAMETHASONE TAB [Concomitant]
     Dosage: 1.5MG TWICE PER DAY
  3. THYROXIN [Concomitant]
  4. EMCONCOR [Concomitant]
     Dosage: 10MG PER DAY
  5. ZANIDIP [Concomitant]
     Dosage: 10MG PER DAY
  6. CRESTOR [Concomitant]
     Dosage: 10MG PER DAY
  7. COZAAR [Concomitant]
     Dosage: 100MG PER DAY
  8. TENOX [Concomitant]
     Dosage: 10MG AT NIGHT
  9. DIAZEPAM [Concomitant]
     Dosage: 10MG AS REQUIRED
  10. DEPRAKINE [Concomitant]
     Indication: EPILEPSY

REACTIONS (2)
  - HYPOALBUMINAEMIA [None]
  - OEDEMA PERIPHERAL [None]
